FAERS Safety Report 12931221 (Version 2)
Quarter: 2021Q3

REPORT INFORMATION
  Report Type: Spontaneous
  Country: US (occurrence: US)
  Receive Date: 20161110
  Receipt Date: 20210817
  Transmission Date: 20211014
  Serious: No
  Sender: FDA-Public Use
  Company Number: US-JAZZ-2016-US-018016

PATIENT
  Sex: Female

DRUGS (45)
  1. XYREM [Suspect]
     Active Substance: SODIUM OXYBATE
     Dosage: 4.5 GRAM, FIRST DOSE
     Route: 048
  2. FLOMAX [Concomitant]
     Active Substance: TAMSULOSIN HYDROCHLORIDE
  3. NORTRIPTYLINE [Concomitant]
     Active Substance: NORTRIPTYLINE
  4. CALCIUM + VITAMIN D [Concomitant]
     Active Substance: CALCIUM\VITAMIN D
  5. LACTULOSE. [Concomitant]
     Active Substance: LACTULOSE
  6. OXYCODONE HCL ER [Concomitant]
     Active Substance: OXYCODONE HYDROCHLORIDE
  7. CYMBALTA [Concomitant]
     Active Substance: DULOXETINE HYDROCHLORIDE
  8. VERAPAMIL [Concomitant]
     Active Substance: VERAPAMIL HYDROCHLORIDE
  9. AMITIZA [Concomitant]
     Active Substance: LUBIPROSTONE
  10. ALSUMA [Concomitant]
     Active Substance: SUMATRIPTAN SUCCINATE
  11. NAPROXEN SODIUM. [Concomitant]
     Active Substance: NAPROXEN SODIUM
  12. LYRICA [Concomitant]
     Active Substance: PREGABALIN
  13. VITAMIN D3 [Concomitant]
     Active Substance: CHOLECALCIFEROL
  14. COLACE [Concomitant]
     Active Substance: DOCUSATE SODIUM
  15. TRAMADOL HCL [Concomitant]
     Active Substance: TRAMADOL HYDROCHLORIDE
  16. EVOXAC [Concomitant]
     Active Substance: CEVIMELINE HYDROCHLORIDE
  17. TORADOL [Concomitant]
     Active Substance: KETOROLAC TROMETHAMINE
  18. POTASSIUM CITRATE ER [Concomitant]
     Active Substance: POTASSIUM CITRATE
  19. VIMOVO [Concomitant]
     Active Substance: ESOMEPRAZOLE MAGNESIUM\NAPROXEN
  20. MIRALAX [Concomitant]
     Active Substance: POLYETHYLENE GLYCOL 3350
  21. SAVELLA [Concomitant]
     Active Substance: MILNACIPRAN HYDROCHLORIDE
  22. FISH OIL CONCENTRATE [Concomitant]
     Active Substance: FISH OIL
  23. MULTIVITAMINS [Concomitant]
     Active Substance: VITAMINS
  24. RESTASIS [Concomitant]
     Active Substance: CYCLOSPORINE
  25. XYREM [Suspect]
     Active Substance: SODIUM OXYBATE
     Dosage: 3.75 GRAM, SECOND DOSE
     Route: 048
  26. MAXALT?MLT [Concomitant]
     Active Substance: RIZATRIPTAN BENZOATE
  27. BOTOX [Concomitant]
     Active Substance: ONABOTULINUMTOXINA
  28. AUBAGIO [Concomitant]
     Active Substance: TERIFLUNOMIDE
  29. NORTRIPTYLINE HCL [Concomitant]
     Active Substance: NORTRIPTYLINE HYDROCHLORIDE
  30. XYREM [Suspect]
     Active Substance: SODIUM OXYBATE
     Indication: NARCOLEPSY
     Dosage: 1.5 GRAM, BID
     Route: 048
     Dates: start: 201001, end: 201003
  31. XYREM [Suspect]
     Active Substance: SODIUM OXYBATE
     Dosage: DOSE ADJUSTMENTS
     Route: 048
     Dates: start: 201003, end: 201212
  32. XYREM [Suspect]
     Active Substance: SODIUM OXYBATE
     Dosage: 4.5 GRAM, FIRST DOSE
     Route: 048
     Dates: start: 201212
  33. XYREM [Suspect]
     Active Substance: SODIUM OXYBATE
     Dosage: 3 GRAM, SECOND DOSE
     Route: 048
     Dates: start: 201212
  34. ZONISAMIDE. [Concomitant]
     Active Substance: ZONISAMIDE
  35. METHOCARBAMOL. [Concomitant]
     Active Substance: METHOCARBAMOL
  36. PROTRIPTYLINE HCL [Concomitant]
     Active Substance: PROTRIPTYLINE HYDROCHLORIDE
  37. ULTRAM [Concomitant]
     Active Substance: TRAMADOL HYDROCHLORIDE
  38. LIALDA [Concomitant]
     Active Substance: MESALAMINE
  39. PREVACID [Concomitant]
     Active Substance: LANSOPRAZOLE
  40. GRALISE [Concomitant]
     Active Substance: GABAPENTIN
  41. TREXIMET [Concomitant]
     Active Substance: NAPROXEN SODIUM\SUMATRIPTAN SUCCINATE
  42. RITALIN [Concomitant]
     Active Substance: METHYLPHENIDATE HYDROCHLORIDE
  43. DYMISTA [Concomitant]
     Active Substance: AZELASTINE HYDROCHLORIDE\FLUTICASONE PROPIONATE
  44. PROVIGIL [Concomitant]
     Active Substance: MODAFINIL
  45. SENNA S [Concomitant]
     Active Substance: DOCUSATE SODIUM\SENNA LEAF

REACTIONS (2)
  - Fibromyalgia [Recovering/Resolving]
  - Migraine [Not Recovered/Not Resolved]
